FAERS Safety Report 8199410-9 (Version None)
Quarter: 2012Q1

REPORT INFORMATION
  Report Type: 
  Country: None (occurrence: None)
  Receive Date: 20120309
  Receipt Date: 20120307
  Transmission Date: 20120608
  Serious: Yes (Life-Threatening, Other)
  Sender: FDA-Public Use
  Company Number: US-B.I. PHARMACEUTICALS,INC./RIDGEFIELD-2012-BP-03085BP

PATIENT
  Sex: Male
  Weight: 136.08 kg

DRUGS (11)
  1. CARVEDILOL [Concomitant]
     Indication: CARDIOMYOPATHY
     Dates: start: 20120101
  2. PRASUGREL [Concomitant]
  3. AMIODARONE HCL [Concomitant]
     Indication: ATRIAL FIBRILLATION
     Dates: start: 20120101
  4. PRADAXA [Suspect]
     Indication: ATRIAL FIBRILLATION
     Route: 048
     Dates: start: 20120101, end: 20120209
  5. HUMALOG [Concomitant]
  6. CEPHALEXIN [Concomitant]
  7. ASPIRIN [Concomitant]
     Indication: MYOCARDIAL INFARCTION
     Dates: start: 20120101
  8. EFFIENT [Concomitant]
     Indication: CORONARY ARTERIAL STENT INSERTION
  9. EFFIENT [Concomitant]
     Indication: MYOCARDIAL INFARCTION
     Dates: start: 20120101
  10. IMDUR [Concomitant]
  11. BUMEX [Concomitant]

REACTIONS (2)
  - RENAL IMPAIRMENT [None]
  - PERICARDIAL HAEMORRHAGE [None]
